FAERS Safety Report 11874453 (Version 1)
Quarter: 2015Q4

REPORT INFORMATION
  Report Type: Spontaneous
  Country: US (occurrence: US)
  Receive Date: 20151229
  Receipt Date: 20151229
  Transmission Date: 20160305
  Serious: Yes (Other)
  Sender: FDA-Public Use
  Company Number: US-CIPLA LTD.-2015US09610

PATIENT

DRUGS (4)
  1. RISPERIDONE. [Suspect]
     Active Substance: RISPERIDONE
     Indication: SCHIZOAFFECTIVE DISORDER
     Route: 064
  2. CARBAMAZEPINE. [Suspect]
     Active Substance: CARBAMAZEPINE
     Dosage: 600 MG, QD
     Route: 064
  3. PAROXETINE [Suspect]
     Active Substance: PAROXETINE\PAROXETINE HYDROCHLORIDE
     Dosage: 20 MG, QD
     Route: 064
  4. FLUPENTIXOL [Suspect]
     Active Substance: FLUPENTIXOL
     Dosage: 50 MG, EVERY TWO WEEKS
     Route: 064

REACTIONS (5)
  - Cerebellar haemorrhage [Unknown]
  - Premature baby [Unknown]
  - Cerebral cyst [Unknown]
  - Foetal exposure during pregnancy [Unknown]
  - Neonatal disorder [Unknown]
